FAERS Safety Report 4512352-2 (Version None)
Quarter: 2004Q4

REPORT INFORMATION
  Report Type: 
  Country: None (occurrence: None)
  Receive Date: 20041123
  Receipt Date: 20041116
  Transmission Date: 20050328
  Serious: Yes (Life-Threatening)
  Sender: FDA-Public Use
  Company Number: 2004AP05878

PATIENT
  Age: 55 Year
  Sex: Male

DRUGS (8)
  1. OMEPRAL [Suspect]
     Dosage: 20 MG DAILY PO
     Route: 048
     Dates: start: 20040520, end: 20041116
  2. NU LOTAN [Suspect]
     Dosage: 50 MG DAILY PO
     Route: 048
  3. BAYASPIRIN [Concomitant]
  4. KERLONG [Concomitant]
  5. ALFAROL [Concomitant]
  6. WARFARIN SODIUM [Concomitant]
  7. INSULIN [Concomitant]
  8. PERSIMMON [Concomitant]

REACTIONS (3)
  - ATRIOVENTRICULAR BLOCK [None]
  - DIALYSIS [None]
  - HYPERKALAEMIA [None]
